FAERS Safety Report 9264120 (Version 1)
Quarter: 2013Q2

REPORT INFORMATION
  Report Type: Report from Study
  Country: FR (occurrence: FR)
  Receive Date: 20130430
  Receipt Date: 20130430
  Transmission Date: 20140414
  Serious: Yes (Other)
  Sender: FDA-Public Use
  Company Number: FR-GENZYME-CAMP-1002893

PATIENT
  Age: 45 Year
  Sex: Female

DRUGS (10)
  1. CAMPATH [Suspect]
     Indication: CHRONIC LYMPHOCYTIC LEUKAEMIA
     Dosage: 3 MG, UNK
     Route: 042
     Dates: start: 20121114, end: 20121114
  2. CAMPATH [Suspect]
     Dosage: 10 MG, UNK
     Route: 042
     Dates: start: 20121115, end: 20121115
  3. CAMPATH [Suspect]
     Dosage: 30 MG, UNK
     Route: 042
     Dates: start: 20121117, end: 20121117
  4. CAMPATH [Suspect]
     Dosage: 30 MG, UNK
     Route: 042
     Dates: start: 20121119, end: 20121119
  5. CAMPATH [Suspect]
     Dosage: 30 MG, UNK
     Route: 042
     Dates: start: 20121121, end: 20121121
  6. CAMPATH [Suspect]
     Dosage: 30 MG, UNK
     Route: 042
     Dates: start: 20121123, end: 20121123
  7. CAMPATH [Suspect]
     Dosage: 30 MG, UNK
     Route: 042
     Dates: start: 20121126, end: 20121126
  8. CAMPATH [Suspect]
     Dosage: 30 MG, UNK
     Route: 042
     Dates: start: 20121128, end: 20121128
  9. CAMPATH [Suspect]
     Dosage: 30 MG, UNK
     Route: 042
     Dates: start: 20121130, end: 20121130
  10. CAMPATH [Suspect]

REACTIONS (3)
  - Asthma [Recovered/Resolved]
  - Pruritus [Recovered/Resolved]
  - Rash [Recovered/Resolved]
